FAERS Safety Report 5361487-3 (Version None)
Quarter: 2007Q2

REPORT INFORMATION
  Report Type: 
  Country: None (occurrence: None)
  Receive Date: 20070619
  Receipt Date: 20070614
  Transmission Date: 20071010
  Serious: Yes (Hospitalization)
  Sender: FDA-Public Use
  Company Number: GB-BAYER-200713339GDS

PATIENT
  Age: 55 Year
  Sex: Male

DRUGS (2)
  1. ASPIRIN [Suspect]
     Indication: PULMONARY FUNCTION CHALLENGE TEST
     Route: 065
  2. SULFASALAZINE [Concomitant]
     Indication: COLITIS ULCERATIVE

REACTIONS (6)
  - DIARRHOEA [None]
  - HAEMORRHAGE [None]
  - HYPERSENSITIVITY [None]
  - PROCTOCOLITIS [None]
  - RHINITIS [None]
  - URTICARIA [None]
